FAERS Safety Report 6165080-4 (Version None)
Quarter: 2009Q2

REPORT INFORMATION
  Report Type: 
  Country: None (occurrence: None)
  Receive Date: 20090421
  Receipt Date: 20090421
  Transmission Date: 20091009
  Serious: Yes (Other)
  Sender: FDA-Public Use
  Company Number: None

PATIENT
  Age: 45 Year
  Sex: Female
  Weight: 65.7716 kg

DRUGS (1)
  1. CELEBREX [Suspect]
     Indication: ARTHRALGIA
     Dosage: 200MG ONCE DAY PO
     Route: 048
     Dates: start: 20080908, end: 20090317

REACTIONS (13)
  - ALOPECIA [None]
  - AMENORRHOEA [None]
  - CHEST PAIN [None]
  - DISTURBANCE IN ATTENTION [None]
  - FATIGUE [None]
  - HEART RATE IRREGULAR [None]
  - INFLUENZA LIKE ILLNESS [None]
  - INSOMNIA [None]
  - MOOD SWINGS [None]
  - PRURITUS GENERALISED [None]
  - SKIN IRRITATION [None]
  - VISION BLURRED [None]
  - WEIGHT INCREASED [None]
